FAERS Safety Report 16850277 (Version 1)
Quarter: 2019Q3

REPORT INFORMATION
  Report Type: Spontaneous
  Country: CH (occurrence: CH)
  Receive Date: 20190925
  Receipt Date: 20190925
  Transmission Date: 20191005
  Serious: Yes (Death, Life-Threatening)
  Sender: FDA-Public Use
  Company Number: CH-JNJFOC-20190923716

PATIENT
  Age: 72 Year
  Sex: Female

DRUGS (2)
  1. TACHOSIL [Suspect]
     Active Substance: FIBRINOGEN HUMAN\THROMBIN HUMAN
     Indication: HAEMORRHAGE
     Route: 061
  2. EVITHROM [Suspect]
     Active Substance: THROMBIN HUMAN
     Indication: HAEMORRHAGE
     Route: 061

REACTIONS (6)
  - Multiple organ dysfunction syndrome [Fatal]
  - Muscle necrosis [Not Recovered/Not Resolved]
  - Aortic thrombosis [Unknown]
  - Acute kidney injury [Not Recovered/Not Resolved]
  - Arterial injury [Unknown]
  - Peripheral artery thrombosis [Unknown]
